FAERS Safety Report 9790576 (Version 1)
Quarter: 2013Q4

REPORT INFORMATION
  Report Type: Spontaneous
  Country: US (occurrence: US)
  Receive Date: 20131231
  Receipt Date: 20131231
  Transmission Date: 20140711
  Serious: Yes (Hospitalization)
  Sender: FDA-Public Use
  Company Number: US-JNJFOC-20131213280

PATIENT
  Sex: Male

DRUGS (1)
  1. INVEGA SUSTENNA [Suspect]
     Indication: PRODUCT USED FOR UNKNOWN INDICATION
     Route: 030
     Dates: start: 200309

REACTIONS (4)
  - Treatment noncompliance [Not Recovered/Not Resolved]
  - Adverse event [Not Recovered/Not Resolved]
  - Deformity [Not Recovered/Not Resolved]
  - Needle track marks [Unknown]
